FAERS Safety Report 9519262 (Version 1)
Quarter: 2013Q3

REPORT INFORMATION
  Report Type: Spontaneous
  Country: US (occurrence: None)
  Receive Date: 20130911
  Receipt Date: 20130911
  Transmission Date: 20140515
  Serious: Yes (Hospitalization, Other)
  Sender: FDA-Public Use
  Company Number: None

PATIENT
  Age: 82 Year
  Sex: Female
  Weight: 95.26 kg

DRUGS (1)
  1. LETROZOLE [Suspect]
     Indication: BREAST CANCER
     Route: 048
     Dates: start: 20121204, end: 20130510

REACTIONS (11)
  - Rash [None]
  - Pruritus [None]
  - Chills [None]
  - Pyrexia [None]
  - Asthenia [None]
  - Deep vein thrombosis [None]
  - Staphylococcal infection [None]
  - Viral infection [None]
  - Tremor [None]
  - Decreased appetite [None]
  - Weight decreased [None]
